FAERS Safety Report 14098943 (Version 1)
Quarter: 2017Q4

REPORT INFORMATION
  Report Type: Spontaneous
  Country: PT (occurrence: PT)
  Receive Date: 20171017
  Receipt Date: 20171017
  Transmission Date: 20180321
  Serious: Yes (Other)
  Sender: FDA-Public Use
  Company Number: PT-LPDUSPRD-20171397

PATIENT
  Age: 74 Year
  Sex: Female

DRUGS (1)
  1. FERINJECT [Suspect]
     Active Substance: FERRIC CARBOXYMALTOSE
     Dosage: 1000 MG
     Route: 065

REACTIONS (7)
  - Urinary incontinence [Unknown]
  - Respiratory arrest [Unknown]
  - Muscle spasticity [Unknown]
  - Malaise [Unknown]
  - Tremor [Unknown]
  - Loss of consciousness [Unknown]
  - Pyrexia [Unknown]
